FAERS Safety Report 5493680-3 (Version None)
Quarter: 2007Q4

REPORT INFORMATION
  Report Type: 
  Country: None (occurrence: None)
  Receive Date: 20071015
  Receipt Date: 20070913
  Transmission Date: 20080405
  Serious: No
  Sender: FDA-Public Use
  Company Number: 2007SP003178

PATIENT
  Age: 70 Year
  Sex: Male
  Weight: 88.4514 kg

DRUGS (6)
  1. LUNESTA [Suspect]
     Indication: INSOMNIA
     Dosage: 3 MG; HS; ORAL
     Route: 048
     Dates: start: 20070911, end: 20070912
  2. AMBIEN CR [Suspect]
     Indication: INSOMNIA
     Dosage: 12.5 MG; HS; ORAL
     Route: 048
     Dates: start: 20070801, end: 20070910
  3. OMEPRAZOLE SODIUM [Concomitant]
  4. TAMSULOSIN HCL [Concomitant]
  5. ATORVASTATIN CALCIUM [Concomitant]
  6. AMLODIPINE [Concomitant]

REACTIONS (3)
  - ABDOMINAL DISTENSION [None]
  - ABDOMINAL PAIN UPPER [None]
  - FLATULENCE [None]
